FAERS Safety Report 24595896 (Version 2)
Quarter: 2025Q3

REPORT INFORMATION
  Report Type: Spontaneous
  Country: US (occurrence: US)
  Receive Date: 20241109
  Receipt Date: 20250805
  Transmission Date: 20251021
  Serious: Yes (Hospitalization, Other)
  Sender: ALEXION PHARMACEUTICALS
  Company Number: US-ASTRAZENECA-202410USA010622US

PATIENT
  Age: 40 Year
  Sex: Female
  Weight: 59.002 kg

DRUGS (7)
  1. LOKELMA [Suspect]
     Active Substance: SODIUM ZIRCONIUM CYCLOSILICATE
     Indication: Hyperkalaemia
  2. JYNARQUE [Suspect]
     Active Substance: TOLVAPTAN
     Indication: Congenital cystic kidney disease
     Route: 065
  3. JYNARQUE [Suspect]
     Active Substance: TOLVAPTAN
     Route: 065
  4. JYNARQUE [Suspect]
     Active Substance: TOLVAPTAN
  5. JYNARQUE [Suspect]
     Active Substance: TOLVAPTAN
     Route: 065
  6. LOSARTAN [Suspect]
     Active Substance: LOSARTAN
     Indication: Blood pressure increased
     Route: 065
  7. LOSARTAN [Suspect]
     Active Substance: LOSARTAN
     Route: 065

REACTIONS (6)
  - Abdominal hernia [Unknown]
  - Abdominal pain [Unknown]
  - Urinary tract infection [Unknown]
  - Hyperkalaemia [Unknown]
  - Laboratory test abnormal [Unknown]
  - Transaminases increased [Not Recovered/Not Resolved]

NARRATIVE: CASE EVENT DATE: 20240926
